FAERS Safety Report 8298309 (Version 3)
Quarter: 2013Q1

REPORT INFORMATION
  Report Type: Spontaneous
  Country: US (occurrence: US)
  Receive Date: 20111219
  Receipt Date: 20130207
  Transmission Date: 20140127
  Serious: Yes (Other)
  Sender: FDA-Public Use
  Company Number: US-ASTRAZENECA-2010SE29976

PATIENT
  Age: 74 Year
  Sex: Female
  Weight: 59.4 kg

DRUGS (16)
  1. ZESTRIL [Suspect]
     Indication: BLOOD PRESSURE
     Route: 048
  2. METOPROLOL SUCCINATE [Suspect]
     Indication: BLOOD PRESSURE
     Route: 048
     Dates: start: 2012
  3. METOPROLOL SUCCINATE [Suspect]
     Indication: BLOOD PRESSURE
     Route: 048
     Dates: start: 2012, end: 201212
  4. METOPROLOL TARTRATE [Suspect]
     Indication: BLOOD PRESSURE
     Route: 065
  5. METOPROLOL TARTRATE [Suspect]
     Indication: BLOOD PRESSURE
     Dosage: 12 MG BID
     Route: 065
  6. CRESTOR [Suspect]
     Indication: HYPERCHOLESTEROLAEMIA
     Route: 048
     Dates: start: 20100519
  7. CRESTOR [Suspect]
     Indication: HYPERCHOLESTEROLAEMIA
     Route: 048
     Dates: start: 2010
  8. CRESTOR [Suspect]
     Indication: HYPERCHOLESTEROLAEMIA
     Route: 048
     Dates: start: 20130117
  9. HYDROCHLOROTH [Suspect]
     Indication: BLOOD PRESSURE
     Route: 065
  10. HYDROCHLOROTH [Suspect]
     Indication: BLOOD PRESSURE
     Route: 065
  11. BAYER ASPIRIN [Suspect]
     Route: 065
  12. SIMVASTATIN [Suspect]
     Route: 048
  13. LIPITOR [Suspect]
     Route: 065
  14. ALIGN [Concomitant]
     Dates: start: 20130118
  15. SUPPLEMENTAL [Concomitant]
  16. VITAMINS [Concomitant]

REACTIONS (11)
  - Hypertension [Unknown]
  - Vision blurred [Unknown]
  - Constipation [Unknown]
  - Pruritus [Recovered/Resolved]
  - Pruritus [Recovered/Resolved]
  - Diarrhoea [Unknown]
  - Feeling abnormal [Unknown]
  - Adverse event [Unknown]
  - Blood pressure increased [Not Recovered/Not Resolved]
  - Expired drug administered [Unknown]
  - Drug ineffective [Unknown]
